FAERS Safety Report 25045074 (Version 1)
Quarter: 2025Q1

REPORT INFORMATION
  Report Type: Spontaneous
  Country: CN (occurrence: CN)
  Receive Date: 20250306
  Receipt Date: 20250306
  Transmission Date: 20250408
  Serious: Yes (Hospitalization)
  Sender: SHENZHEN TECHDOW PHARMACEUTICAL
  Company Number: CN-adr44030518216-HPR2025000025

PATIENT
  Age: 70 Year
  Sex: Male
  Weight: 51.45 kg

DRUGS (2)
  1. ENOXAPARIN SODIUM [Suspect]
     Active Substance: ENOXAPARIN SODIUM
     Indication: Anticoagulant therapy
     Dosage: 0.1ML,QD
     Dates: start: 20250217, end: 20250217
  2. HEPARIN SODIUM [Concomitant]
     Active Substance: HEPARIN SODIUM
     Indication: Catheter management
     Dosage: 4ML,QD
     Dates: start: 20250217, end: 20250217

REACTIONS (2)
  - Coagulation time prolonged [Unknown]
  - Occult blood positive [Unknown]

NARRATIVE: CASE EVENT DATE: 20250217
